FAERS Safety Report 4295991-6 (Version None)
Quarter: 2004Q1

REPORT INFORMATION
  Report Type: 
  Country: None (occurrence: None)
  Receive Date: 20040212
  Receipt Date: 20040203
  Transmission Date: 20041129
  Serious: Yes (Hospitalization)
  Sender: FDA-Public Use
  Company Number: 2004-02-0042

PATIENT
  Age: 51 Year
  Sex: Male
  Weight: 65 kg

DRUGS (2)
  1. GENTAMICIN SULFATE [Suspect]
     Dosage: INTRAVENOUS
     Route: 042
     Dates: start: 20030308, end: 20030308
  2. ROCEPHIN [Suspect]
     Dosage: INTRAMUSCULAR
     Route: 030
     Dates: start: 20030308, end: 20030308

REACTIONS (1)
  - ANAPHYLACTIC SHOCK [None]
